FAERS Safety Report 5162399-0 (Version None)
Quarter: 2006Q4

REPORT INFORMATION
  Report Type: 
  Country: None (occurrence: None)
  Receive Date: 20061128
  Receipt Date: 20061128
  Transmission Date: 20070319
  Serious: Yes (Other)
  Sender: FDA-Public Use
  Company Number: None

PATIENT
  Age: 83 Year
  Sex: Male
  Weight: 57.6068 kg

DRUGS (8)
  1. SEROQUEL [Suspect]
     Indication: MENTAL STATUS CHANGES
     Dosage: 1/2 TABLET PO
     Route: 048
     Dates: start: 20060608, end: 20060612
  2. CALCIUM CARBONATE W/ VIT D [Concomitant]
  3. CLONIDINE [Concomitant]
  4. B 12 [Concomitant]
  5. FELODIPINE [Concomitant]
  6. FOLIC ACID [Concomitant]
  7. ERGOCALCIFEROL [Concomitant]
  8. HEPARIN [Concomitant]

REACTIONS (1)
  - BLOOD PRESSURE SYSTOLIC DECREASED [None]
